FAERS Safety Report 7745588-8 (Version None)
Quarter: 2011Q3

REPORT INFORMATION
  Report Type: 
  Country: None (occurrence: None)
  Receive Date: 20110913
  Receipt Date: 20110815
  Transmission Date: 20111222
  Serious: No
  Sender: FDA-Public Use
  Company Number: US-BAYER-2011-074844

PATIENT
  Age: 49 Year
  Sex: Female
  Weight: 95 kg

DRUGS (2)
  1. VITAMIN TAB [Concomitant]
  2. ALEVE (CAPLET) [Suspect]
     Indication: ARTHRITIS
     Dosage: 2 DF, ONCE
     Route: 048
     Dates: start: 20110815, end: 20110815

REACTIONS (7)
  - PRURITUS [None]
  - DYSPHONIA [None]
  - COUGH [None]
  - URTICARIA [None]
  - ERYTHEMA [None]
  - SKIN WARM [None]
  - DYSPNOEA [None]
